FAERS Safety Report 6614027-2 (Version None)
Quarter: 2010Q1

REPORT INFORMATION
  Report Type: 
  Country: None (occurrence: None)
  Receive Date: 20100304
  Receipt Date: 20100225
  Transmission Date: 20100710
  Serious: Yes (Hospitalization)
  Sender: FDA-Public Use
  Company Number: JP-MERCK-1002USA02086

PATIENT
  Age: 70 Year
  Sex: Female
  Weight: 65 kg

DRUGS (23)
  1. JANUVIA [Suspect]
     Indication: DIABETES MELLITUS
     Route: 048
     Dates: start: 20100125, end: 20100206
  2. AMARYL [Concomitant]
     Dosage: DAILY DOSAGE UNKNOWN
     Route: 048
     Dates: end: 20100206
  3. METFORMIN HCL [Concomitant]
     Dosage: DAILY DOSAGE UNKNOWN
     Route: 048
     Dates: end: 20100206
  4. GENINAX [Suspect]
     Indication: UPPER RESPIRATORY TRACT INFLAMMATION
     Route: 048
     Dates: start: 20100125, end: 20100128
  5. GENINAX [Suspect]
     Route: 048
     Dates: start: 20100130, end: 20100202
  6. LOXONIN [Suspect]
     Indication: UPPER RESPIRATORY TRACT INFLAMMATION
     Route: 048
     Dates: start: 20100201, end: 20100202
  7. LOXONIN [Suspect]
     Route: 048
     Dates: start: 20100204, end: 20100204
  8. COUGH, COLD, AND FLU THERAPIES (UNSPECIFIED) [Concomitant]
     Indication: UPPER RESPIRATORY TRACT INFLAMMATION
     Route: 048
     Dates: start: 20100125, end: 20100128
  9. COUGH, COLD, AND FLU THERAPIES (UNSPECIFIED) [Concomitant]
     Route: 048
     Dates: start: 20100130, end: 20100202
  10. ALLELOCK [Concomitant]
     Indication: UPPER RESPIRATORY TRACT INFLAMMATION
     Route: 048
     Dates: start: 20100125, end: 20100128
  11. ALLELOCK [Concomitant]
     Route: 048
     Dates: start: 20100130, end: 20100202
  12. MUCOSOLVAN [Concomitant]
     Indication: UPPER RESPIRATORY TRACT INFLAMMATION
     Route: 048
     Dates: start: 20100130, end: 20100202
  13. RESPLEN [Concomitant]
     Indication: UPPER RESPIRATORY TRACT INFLAMMATION
     Route: 048
     Dates: start: 20100202, end: 20100204
  14. MUCODYNE [Concomitant]
     Indication: UPPER RESPIRATORY TRACT INFLAMMATION
     Route: 048
     Dates: start: 20100202, end: 20100204
  15. METHYCOBAL [Concomitant]
     Indication: VITAMIN B12 DEFICIENCY
     Route: 042
     Dates: start: 20100204, end: 20100204
  16. HAROSMIN [Concomitant]
     Indication: UPPER RESPIRATORY TRACT INFLAMMATION
     Route: 042
     Dates: start: 20100204, end: 20100204
  17. PREDONINE [Concomitant]
     Indication: UPPER RESPIRATORY TRACT INFLAMMATION
     Route: 042
     Dates: start: 20100204, end: 20100204
  18. HUSCODE [Concomitant]
     Indication: UPPER RESPIRATORY TRACT INFLAMMATION
     Route: 048
     Dates: start: 20100204, end: 20100204
  19. BEROTEC [Concomitant]
     Indication: UPPER RESPIRATORY TRACT INFLAMMATION
     Route: 048
     Dates: start: 20100204, end: 20100204
  20. FLOMOX [Concomitant]
     Indication: UPPER RESPIRATORY TRACT INFLAMMATION
     Route: 048
     Dates: start: 20100204, end: 20100204
  21. POLARAMINE [Concomitant]
     Dosage: DAILY DOSE UNKNOWN
     Route: 048
     Dates: start: 20100206
  22. [COMPOSITION UNSPECIFIED] [Concomitant]
     Indication: HYPERLIPIDAEMIA
     Dosage: DAILY DOSE UNKNOWN
     Route: 065
     Dates: end: 20100206
  23. [COMPOSITION UNSPECIFIED] [Concomitant]
     Indication: ANXIETY DISORDER
     Dosage: DAILY DOSE UNKNOWN
     Route: 065
     Dates: end: 20100206

REACTIONS (4)
  - BLOOD CREATINE PHOSPHOKINASE INCREASED [None]
  - HEPATIC FUNCTION ABNORMAL [None]
  - PLATELET COUNT DECREASED [None]
  - STEVENS-JOHNSON SYNDROME [None]
